FAERS Safety Report 8251233-8 (Version None)
Quarter: 2012Q2

REPORT INFORMATION
  Report Type: 
  Country: None (occurrence: None)
  Receive Date: 20120402
  Receipt Date: 20120323
  Transmission Date: 20120825
  Serious: Yes (Hospitalization)
  Sender: FDA-Public Use
  Company Number: US-JNJFOC-20120308024

PATIENT
  Sex: Male
  Weight: 33 kg

DRUGS (3)
  1. REMICADE [Suspect]
     Indication: CROHN'S DISEASE
     Route: 042
     Dates: start: 20070112, end: 20090609
  2. HUMIRA [Concomitant]
     Dates: start: 20090730
  3. METHOTREXATE [Concomitant]
     Dates: start: 20090730

REACTIONS (2)
  - GASTROENTERITIS VIRAL [None]
  - DEHYDRATION [None]
